FAERS Safety Report 21108627 (Version 6)
Quarter: 2023Q1

REPORT INFORMATION
  Report Type: Report from Study
  Country: US (occurrence: US)
  Receive Date: 20220721
  Receipt Date: 20230109
  Transmission Date: 20230418
  Serious: No
  Sender: FDA-Public Use
  Company Number: US-NOVARTISTESTPH-NVSC2022US164617

PATIENT
  Sex: Female

DRUGS (2)
  1. COSENTYX [Suspect]
     Active Substance: SECUKINUMAB
     Indication: Psoriasis
     Dosage: UNK
     Route: 065
  2. COSENTYX [Suspect]
     Active Substance: SECUKINUMAB
     Indication: Psoriatic arthropathy

REACTIONS (10)
  - White blood cell count increased [Unknown]
  - Ingrown hair [Unknown]
  - Furuncle [Unknown]
  - Infection [Unknown]
  - Fall [Unknown]
  - Alopecia [Unknown]
  - Stress [Unknown]
  - Arthralgia [Unknown]
  - Psoriasis [Unknown]
  - Pain [Unknown]
